FAERS Safety Report 9170771 (Version 2)
Quarter: 2013Q1

REPORT INFORMATION
  Report Type: Spontaneous
  Country: GB (occurrence: None)
  Receive Date: 20130325
  Receipt Date: 20130325
  Transmission Date: 20140127
  Serious: Yes (Other)
  Sender: FDA-Public Use
  Company Number: GER/UKI/13/0028435

PATIENT
  Age: 30 Year
  Sex: Female
  Weight: 70 kg

DRUGS (2)
  1. RISPERIDONE [Suspect]
     Indication: SCHIZOPHRENIA
     Route: 048
  2. XEPLION [Suspect]
     Indication: SCHIZOPHRENIA
     Dosage: 50 MG, 1 IN 4 WK, INTRAMUSCULAR
     Dates: start: 20120622, end: 20121114

REACTIONS (6)
  - Pregnancy [None]
  - Maternal exposure during pregnancy [None]
  - Haemorrhage in pregnancy [None]
  - Abortion induced [None]
  - Oligohydramnios [None]
  - Complication of pregnancy [None]
